FAERS Safety Report 4548056-X (Version None)
Quarter: 2004Q4

REPORT INFORMATION
  Report Type: 
  Country: None (occurrence: None)
  Receive Date: 20041227
  Receipt Date: 20040929
  Transmission Date: 20050328
  Serious: No
  Sender: FDA-Public Use
  Company Number: 04P-163-0275247-00

PATIENT
  Age: 62 Year
  Sex: Female
  Weight: 56.246 kg

DRUGS (8)
  1. HUMIRA [Suspect]
     Indication: RHEUMATOID ARTHRITIS
     Dosage: 40 MG, 1 IN 2 WK, SUBCUTANEOUS
     Route: 058
     Dates: start: 20040401
  2. GABAPENTIN [Concomitant]
  3. PREDNISONE [Concomitant]
  4. ATENOLOL [Concomitant]
  5. CELECOXIB [Concomitant]
  6. METHOTREXATE SODIUM [Concomitant]
  7. PROPACET 100 [Concomitant]
  8. ACETAMINOPHEN W/ CODEINE [Concomitant]

REACTIONS (2)
  - INJECTION SITE ERYTHEMA [None]
  - RASH ERYTHEMATOUS [None]
